FAERS Safety Report 5016416-9 (Version None)
Quarter: 2006Q2

REPORT INFORMATION
  Report Type: 
  Country: None (occurrence: None)
  Receive Date: 20060602
  Receipt Date: 20051031
  Transmission Date: 20061013
  Serious: Yes (Hospitalization)
  Sender: FDA-Public Use
  Company Number: 2005AP06082

PATIENT
  Age: 77 Year
  Sex: Male

DRUGS (1)
  1. ZOLADEX [Suspect]
     Indication: PROSTATE CANCER
     Dosage: 5TH INJECTION ADMINISTERED
     Route: 058
     Dates: start: 20040901, end: 20050920

REACTIONS (2)
  - DRUG ERUPTION [None]
  - GENERALISED ERYTHEMA [None]
